FAERS Safety Report 5095467-2 (Version None)
Quarter: 2006Q3

REPORT INFORMATION
  Report Type: 
  Country: None (occurrence: None)
  Receive Date: 20060830
  Receipt Date: 20060821
  Transmission Date: 20061208
  Serious: Yes (Hospitalization)
  Sender: FDA-Public Use
  Company Number: TPA2006A01373

PATIENT
  Age: 50 Year
  Sex: Female
  Weight: 93.8946 kg

DRUGS (7)
  1. ROZEREM (RAMELTEON) (9 MILLIGRAM) [Suspect]
     Indication: INSOMNIA
     Dosage: 8 MG QHS PER ORAL
     Route: 048
     Dates: start: 20050101
  2. AMBIEN CR (ZOLPIDEM TARTRATE) [Concomitant]
  3. NORCO [Concomitant]
  4. CLIMARA PATCH (ESTRADIOL) [Concomitant]
  5. ADDERALL XR (DEXAMFETAMINE SULFATE, AMFETAMINE SULFATE, DEXAMFETAMINE [Concomitant]
  6. CYMBALTA [Concomitant]
  7. MIDRIN (PARACETAMOL, DICHLORALPHENAZONE, ISOMETHEPTENE) [Concomitant]

REACTIONS (9)
  - ARTHRITIS [None]
  - BONE DISORDER [None]
  - CARPAL TUNNEL SYNDROME [None]
  - CONDITION AGGRAVATED [None]
  - HORMONE LEVEL ABNORMAL [None]
  - HYPERHIDROSIS [None]
  - KNEE ARTHROPLASTY [None]
  - OSTEOGENESIS IMPERFECTA [None]
  - PAIN [None]
